FAERS Safety Report 18194657 (Version 3)
Quarter: 2020Q3

REPORT INFORMATION
  Report Type: Spontaneous
  Country: IE (occurrence: IE)
  Receive Date: 20200825
  Receipt Date: 20200928
  Transmission Date: 20201103
  Serious: Yes (Hospitalization, Other)
  Sender: FDA-Public Use
  Company Number: IE-MYLANLABS-2020M1048075

PATIENT
  Age: 38 Year
  Sex: Female

DRUGS (1)
  1. CLOZARIL [Suspect]
     Active Substance: CLOZAPINE
     Indication: SCHIZOPHRENIA
     Dosage: UNK
     Route: 048
     Dates: start: 20191114, end: 20200917

REACTIONS (4)
  - Anaemia [Unknown]
  - Pneumonia [Unknown]
  - Total lung capacity decreased [Unknown]
  - Schizophrenia [Unknown]

NARRATIVE: CASE EVENT DATE: 20200818
